FAERS Safety Report 5782101-9 (Version None)
Quarter: 2008Q2

REPORT INFORMATION
  Report Type: 
  Country: None (occurrence: None)
  Receive Date: 20080623
  Receipt Date: 20080616
  Transmission Date: 20081010
  Serious: Yes (Death, Hospitalization)
  Sender: FDA-Public Use
  Company Number: US-AVENTIS-200815706GDDC

PATIENT
  Age: 57 Year
  Sex: Female
  Weight: 83.91 kg

DRUGS (9)
  1. DOCETAXEL [Suspect]
     Indication: BREAST CANCER
     Route: 042
     Dates: start: 20080609, end: 20080609
  2. CYTOXAN [Suspect]
     Indication: BREAST CANCER
     Route: 042
     Dates: start: 20080609, end: 20080609
  3. ADRIAMYCIN PFS [Suspect]
     Indication: BREAST CANCER
     Route: 042
     Dates: start: 20080609, end: 20080609
  4. NEUPOGEN [Suspect]
     Route: 058
     Dates: start: 20080610
  5. ATENOLOL [Concomitant]
  6. BENADRYL [Concomitant]
  7. HYDROCHLOROTHIAZIDE [Concomitant]
  8. DARVOCET-N 100 [Concomitant]
  9. CLONIDINE [Concomitant]

REACTIONS (4)
  - ARRHYTHMIA [None]
  - CARDIAC FAILURE CONGESTIVE [None]
  - RENAL FAILURE ACUTE [None]
  - SEPSIS [None]
